FAERS Safety Report 9020918 (Version 1)
Quarter: 2013Q1

REPORT INFORMATION
  Report Type: Spontaneous
  Country: None (occurrence: US)
  Receive Date: 20130119
  Receipt Date: 20130119
  Transmission Date: 20140127
  Serious: No
  Sender: FDA-Public Use
  Company Number: US-ALLERGAN-1205213US

PATIENT
  Age: 69 Year
  Sex: Male

DRUGS (3)
  1. BOTOX? [Suspect]
     Indication: MUSCLE TWITCHING
     Dosage: UNK
     Route: 030
     Dates: start: 20120309, end: 20120309
  2. BOTOX? [Suspect]
     Dosage: UNK
     Dates: start: 20120312, end: 20120312
  3. GLAUCOMA MEDICATION NOS [Concomitant]
     Indication: GLAUCOMA
     Dosage: 2 GTT, UNK

REACTIONS (3)
  - Facial paresis [Recovering/Resolving]
  - Dysarthria [Recovering/Resolving]
  - Eyelid ptosis [Recovering/Resolving]
